FAERS Safety Report 21884576 (Version 1)
Quarter: 2023Q1

REPORT INFORMATION
  Report Type: Spontaneous
  Country: US (occurrence: US)
  Receive Date: 20230119
  Receipt Date: 20230119
  Transmission Date: 20230418
  Serious: No
  Sender: FDA-Public Use
  Company Number: US-Calliditas-2022CAL00646

PATIENT
  Age: 53 Year
  Sex: Male

DRUGS (1)
  1. TARPEYO [Suspect]
     Active Substance: BUDESONIDE
     Indication: IgA nephropathy
     Dosage: 16MG (4MG CAPSULES) DAILY
     Route: 048
     Dates: start: 20220608

REACTIONS (5)
  - Peripheral swelling [Unknown]
  - Peripheral swelling [Unknown]
  - Generalised oedema [Unknown]
  - Dyspnoea [Unknown]
  - Physical examination abnormal [Unknown]
